FAERS Safety Report 4301942-8 (Version None)
Quarter: 2004Q1

REPORT INFORMATION
  Report Type: 
  Country: None (occurrence: None)
  Receive Date: 20040220
  Receipt Date: 20040209
  Transmission Date: 20041129
  Serious: Yes (Hospitalization, Disabling)
  Sender: FDA-Public Use
  Company Number: 2004SE00686

PATIENT
  Age: 47 Year
  Sex: Male

DRUGS (5)
  1. FOSCAVIR [Suspect]
     Indication: HERPES VIRUS INFECTION
     Dosage: 3500 MG DAILY IV
     Route: 042
     Dates: start: 20031215
  2. FOSCAVIR [Suspect]
     Indication: PROPHYLAXIS
     Dosage: 3500 MG DAILY IV
     Route: 042
     Dates: start: 20031215
  3. BACTRIMEL [Concomitant]
  4. CYCLOSPORINE [Concomitant]
  5. PREDNISONE [Concomitant]

REACTIONS (5)
  - DYSPNOEA [None]
  - IMMUNE SYSTEM DISORDER [None]
  - LISTLESS [None]
  - MUSCLE CRAMP [None]
  - PARAESTHESIA [None]
